FAERS Safety Report 9735106 (Version 2)
Quarter: 2013Q4

REPORT INFORMATION
  Report Type: Spontaneous
  Country: US (occurrence: None)
  Receive Date: 20131204
  Receipt Date: 20131211
  Transmission Date: 20140711
  Serious: Yes (Death)
  Sender: FDA-Public Use
  Company Number: UTC-041087

PATIENT
  Age: 65 Year
  Sex: Female
  Weight: 91.36 kg

DRUGS (2)
  1. REMODULIN [Suspect]
     Indication: PULMONARY ARTERIAL HYPERTENSION
     Dosage: 141.12 UG/KG (0.098 UG/KG 1 IN 1 MIN)
     Route: 058
     Dates: start: 20120118
  2. ADCICRA (TADALAFIL) (UNKNOWN) [Concomitant]

REACTIONS (1)
  - Death [None]
